FAERS Safety Report 9058770 (Version 2)
Quarter: 2013Q1

REPORT INFORMATION
  Report Type: Spontaneous
  Country: US (occurrence: US)
  Receive Date: 20130204
  Receipt Date: 20130322
  Transmission Date: 20140127
  Serious: No
  Sender: FDA-Public Use
  Company Number: US-ROXANE LABORATORIES, INC.-2013-RO-00191RO

PATIENT
  Sex: Female

DRUGS (1)
  1. FLECAINIDE [Suspect]
     Indication: ARRHYTHMIA
     Dosage: 200 MG
     Route: 048

REACTIONS (5)
  - Foreign body [Recovered/Resolved]
  - Throat irritation [Recovered/Resolved]
  - Malaise [Recovered/Resolved]
  - Dysphonia [Recovered/Resolved]
  - Product quality issue [Not Recovered/Not Resolved]
